FAERS Safety Report 15075462 (Version 1)
Quarter: 2018Q2

REPORT INFORMATION
  Report Type: Spontaneous
  Country: US (occurrence: US)
  Receive Date: 20180602
  Receipt Date: 20180602
  Transmission Date: 20180711
  Serious: Yes (Hospitalization)
  Sender: FDA-Public Use
  Company Number: None

PATIENT
  Age: 24 Month
  Sex: Male
  Weight: 12.5 kg

DRUGS (3)
  1. CISPLATIN. [Suspect]
     Active Substance: CISPLATIN
     Dates: end: 20180512
  2. ETOPOSIDE (VP-16) [Suspect]
     Active Substance: ETOPOSIDE
     Dates: end: 20180512
  3. BLEOMYCIN [Suspect]
     Active Substance: BLEOMYCIN SULFATE
     Dosage: ?          OTHER DOSE:8.4 UNIT;?
     Dates: end: 20180508

REACTIONS (4)
  - Abdominal pain [None]
  - Diarrhoea [None]
  - Hypersensitivity [None]
  - Febrile neutropenia [None]

NARRATIVE: CASE EVENT DATE: 20180520
